FAERS Safety Report 19252521 (Version 1)
Quarter: 2021Q2

REPORT INFORMATION
  Report Type: Spontaneous
  Country: US (occurrence: US)
  Receive Date: 20210512
  Receipt Date: 20210512
  Transmission Date: 20210717
  Serious: No
  Sender: FDA-Public Use
  Company Number: US-JNJFOC-20210504905

PATIENT
  Sex: Female

DRUGS (1)
  1. PEPCID [Suspect]
     Active Substance: FAMOTIDINE
     Indication: ANTACID THERAPY
     Dosage: 1 DOSE PER DAY ONCE A DAY FOR 3 DAYS?STOPPED USING IT FOR A WEEK AND STARTED USING IT AGAIN AND THE
     Route: 065
     Dates: start: 20210419

REACTIONS (1)
  - Headache [Recovered/Resolved]

NARRATIVE: CASE EVENT DATE: 20210419
